FAERS Safety Report 4337501-0 (Version None)
Quarter: 2004Q2

REPORT INFORMATION
  Report Type: 
  Country: None (occurrence: None)
  Receive Date: 20040408
  Receipt Date: 20040401
  Transmission Date: 20050107
  Serious: Yes (Other)
  Sender: FDA-Public Use
  Company Number: 2004201715DE

PATIENT
  Age: 58 Year
  Sex: Female
  Weight: 53 kg

DRUGS (1)
  1. AROMASIN [Suspect]
     Indication: BREAST CANCER
     Dosage: ORAL
     Route: 048

REACTIONS (5)
  - BLOOD ANDROSTENEDIONE INCREASED [None]
  - BONE PAIN [None]
  - FACIAL PAIN [None]
  - MUSCLE DISORDER [None]
  - SWELLING FACE [None]
